FAERS Safety Report 10218219 (Version 1)
Quarter: 2014Q2

REPORT INFORMATION
  Report Type: Spontaneous
  Country: US (occurrence: US)
  Receive Date: 20140605
  Receipt Date: 20140605
  Transmission Date: 20141212
  Serious: Yes (Other)
  Sender: FDA-Public Use
  Company Number: 2014SP002210

PATIENT
  Age: 54 Year
  Sex: Female

DRUGS (2)
  1. METHOTREXATE [Suspect]
     Indication: PRODUCT USED FOR UNKNOWN INDICATION
     Dates: start: 201302, end: 201404
  2. ETANERCEPT [Suspect]
     Indication: RHEUMATOID ARTHRITIS
     Dates: start: 20130901, end: 201401

REACTIONS (8)
  - Condition aggravated [Recovered/Resolved]
  - Joint stiffness [Recovered/Resolved]
  - Hand deformity [Recovered/Resolved]
  - Discomfort [Recovered/Resolved]
  - Mobility decreased [Recovered/Resolved]
  - Stomatitis [Not Recovered/Not Resolved]
  - Gingival pain [Not Recovered/Not Resolved]
  - Skin disorder [Not Recovered/Not Resolved]
